FAERS Safety Report 7285328-2 (Version None)
Quarter: 2011Q1

REPORT INFORMATION
  Report Type: 
  Country: None (occurrence: None)
  Receive Date: 20110210
  Receipt Date: 20110201
  Transmission Date: 20110831
  Serious: Yes (Other)
  Sender: FDA-Public Use
  Company Number: BR-ROCHE-757032

PATIENT
  Sex: Male
  Weight: 96 kg

DRUGS (2)
  1. LEXOTAN [Suspect]
     Indication: DEPRESSION
     Dosage: STOP DATE: MORE THAN 20 YRS AGO
     Route: 065
     Dates: end: 19910101
  2. RIVOTRIL [Suspect]
     Indication: DEPRESSION
     Dosage: START DATE: MORE THAN 20 YRS AGO
     Route: 065
     Dates: start: 19910101

REACTIONS (5)
  - HEADACHE [None]
  - DIABETES MELLITUS [None]
  - HYPERTENSION [None]
  - SOMNOLENCE [None]
  - PEYRONIE'S DISEASE [None]
